FAERS Safety Report 14875466 (Version 1)
Quarter: 2018Q2

REPORT INFORMATION
  Report Type: Spontaneous
  Country: FR (occurrence: FR)
  Receive Date: 20180510
  Receipt Date: 20180510
  Transmission Date: 20180711
  Serious: Yes (Other)
  Sender: FDA-Public Use
  Company Number: FR-MERCK KGAA-2047553

PATIENT
  Age: 50 Year
  Sex: Female

DRUGS (1)
  1. NOVOTHYROX [Suspect]
     Active Substance: LEVOTHYROXINE SODIUM
     Indication: PRODUCT USED FOR UNKNOWN INDICATION

REACTIONS (25)
  - Loss of personal independence in daily activities [None]
  - Abdominal pain upper [Recovered/Resolved]
  - Impaired driving ability [None]
  - Asthenia [None]
  - Mobility decreased [None]
  - Fatigue [None]
  - Dizziness [None]
  - Disturbance in attention [Recovered/Resolved]
  - Blood thyroid stimulating hormone decreased [Recovered/Resolved]
  - Decreased activity [None]
  - Vomiting [None]
  - Loss of consciousness [Recovered/Resolved]
  - Amnesia [None]
  - Fear of falling [None]
  - Depression [None]
  - Arthralgia [None]
  - Anxiety [None]
  - Restless legs syndrome [None]
  - Decreased appetite [Recovered/Resolved]
  - Negative thoughts [None]
  - Apathy [None]
  - Loss of libido [None]
  - Thyroglobulin decreased [None]
  - Alopecia [None]
  - Muscle spasms [None]

NARRATIVE: CASE EVENT DATE: 2017
